FAERS Safety Report 23726744 (Version 2)
Quarter: 2024Q4

REPORT INFORMATION
  Report Type: Spontaneous
  Country: PL (occurrence: PL)
  Receive Date: 20240410
  Receipt Date: 20241213
  Transmission Date: 20250114
  Serious: Yes (Death, Other)
  Sender: RANBAXY
  Company Number: PL-SUN PHARMACEUTICAL INDUSTRIES LTD-2024R1-440219

PATIENT
  Age: 30 Year
  Sex: Male

DRUGS (17)
  1. AZITHROMYCIN [Suspect]
     Active Substance: AZITHROMYCIN
     Indication: Graft versus host disease
     Dosage: 500 MILLIGRAM
     Route: 065
  2. CANDESARTAN [Suspect]
     Active Substance: CANDESARTAN
     Indication: Product used for unknown indication
     Dosage: 800 MILLIGRAM
     Route: 065
  3. METOPROLOL [Suspect]
     Active Substance: METOPROLOL
     Indication: Product used for unknown indication
     Dosage: UNK
     Route: 065
  4. MELPHALAN [Suspect]
     Active Substance: MELPHALAN
     Indication: Myeloproliferative neoplasm
     Route: 065
  5. METHYLPREDNISOLONE [Suspect]
     Active Substance: METHYLPREDNISOLONE
     Indication: Chronic graft versus host disease
     Dosage: UNK
     Route: 065
  6. METHOTREXATE [Suspect]
     Active Substance: METHOTREXATE
     Indication: Prophylaxis against graft versus host disease
     Dosage: UNK
     Route: 065
  7. MONTELUKAST [Suspect]
     Active Substance: MONTELUKAST
     Indication: Lung disorder
     Dosage: UNK
     Route: 065
  8. MYCOPHENOLATE MOFETIL [Suspect]
     Active Substance: MYCOPHENOLATE MOFETIL
     Indication: Graft versus host disease
     Dosage: UNK
     Route: 065
  9. TACROLIMUS [Suspect]
     Active Substance: TACROLIMUS
     Indication: Product used for unknown indication
  10. CYCLOSPORINE [Suspect]
     Active Substance: CYCLOSPORINE
     Indication: Prophylaxis against graft versus host disease
     Dosage: UNK
     Route: 065
  11. FLUDARABINE [Suspect]
     Active Substance: FLUDARABINE PHOSPHATE
     Indication: Myeloproliferative neoplasm
     Dosage: UNK
     Route: 065
  12. MOMETASONE FUROATE [Suspect]
     Active Substance: MOMETASONE FUROATE
     Indication: Product used for unknown indication
     Dosage: UNK
     Route: 065
  13. RUXOLITINIB [Suspect]
     Active Substance: RUXOLITINIB
     Indication: Product used for unknown indication
     Dosage: UNK
     Route: 048
  14. SACUBITRIL\VALSARTAN [Suspect]
     Active Substance: SACUBITRIL\VALSARTAN
     Indication: Product used for unknown indication
     Dosage: UNK
     Route: 065
  15. SIROLIMUS [Suspect]
     Active Substance: SIROLIMUS
     Indication: Graft versus host disease
     Dosage: UNK
     Route: 065
  16. TORSEMIDE [Suspect]
     Active Substance: TORSEMIDE
     Indication: Product used for unknown indication
     Dosage: UNK
     Route: 065
  17. FLUTICASONE [Suspect]
     Active Substance: FLUTICASONE
     Indication: Chronic graft versus host disease
     Dosage: UNK
     Route: 065

REACTIONS (17)
  - Drug resistance [Fatal]
  - Disease recurrence [Fatal]
  - Condition aggravated [Fatal]
  - Pneumonia [Fatal]
  - Disease progression [Fatal]
  - General physical health deterioration [Fatal]
  - Chronic graft versus host disease [Fatal]
  - Pleural effusion [Fatal]
  - Dyspnoea [Fatal]
  - Weight decreased [Unknown]
  - Lichenoid keratosis [Fatal]
  - Mastication disorder [Fatal]
  - Exercise tolerance decreased [Unknown]
  - Pulmonary congestion [Unknown]
  - Heart rate increased [Unknown]
  - Ejection fraction abnormal [Unknown]
  - Cough [Unknown]
